FAERS Safety Report 9666307 (Version 1)
Quarter: 2013Q4

REPORT INFORMATION
  Report Type: Spontaneous
  Country: SE (occurrence: SE)
  Receive Date: 20131104
  Receipt Date: 20131104
  Transmission Date: 20140711
  Serious: Yes (Other)
  Sender: FDA-Public Use
  Company Number: SE-BRISTOL-MYERS SQUIBB COMPANY-19638766

PATIENT
  Age: 80 Year
  Sex: Female

DRUGS (2)
  1. ABILIFY TABS 15 MG [Suspect]
  2. LITHIONIT [Suspect]
     Dosage: LITHIONIT PROLONGED-RELEASE TABLET

REACTIONS (5)
  - Toxicity to various agents [Recovered/Resolved]
  - Electrolyte imbalance [Recovered/Resolved]
  - Dysarthria [Recovered/Resolved]
  - VIIth nerve paralysis [Recovered/Resolved]
  - Urinary retention [Recovered/Resolved]
